FAERS Safety Report 22149649 (Version 1)
Quarter: 2023Q1

REPORT INFORMATION
  Report Type: Spontaneous
  Country: US (occurrence: US)
  Receive Date: 20230329
  Receipt Date: 20230329
  Transmission Date: 20230418
  Serious: Yes (Death, Other)
  Sender: FDA-Public Use
  Company Number: US-drreddys-LIT/USA/23/0162893

PATIENT
  Age: 65 Year
  Sex: Male

DRUGS (1)
  1. COLCHICINE [Suspect]
     Active Substance: COLCHICINE
     Indication: Prophylaxis

REACTIONS (10)
  - Respiratory failure [Fatal]
  - Pericarditis constrictive [Fatal]
  - Malignant mediastinal neoplasm [Fatal]
  - Pericardial effusion [Unknown]
  - Pneumomediastinum [Unknown]
  - Pseudomonas infection [Unknown]
  - Escherichia infection [Unknown]
  - Candida infection [Unknown]
  - Klebsiella infection [Unknown]
  - Drug ineffective for unapproved indication [Unknown]
